FAERS Safety Report 9281612 (Version 1)
Quarter: 2013Q2

REPORT INFORMATION
  Report Type: Spontaneous
  Country: US (occurrence: US)
  Receive Date: 20130509
  Receipt Date: 20130509
  Transmission Date: 20140414
  Serious: Yes (Hospitalization, Other)
  Sender: FDA-Public Use
  Company Number: US-ABBOTT-13P-163-1084334-00

PATIENT
  Age: 72 Year
  Sex: Female
  Weight: 74.46 kg

DRUGS (10)
  1. NIASPAN (COATED) [Suspect]
     Indication: BLOOD CHOLESTEROL ABNORMAL
     Route: 048
  2. TIKOSYN [Suspect]
     Indication: ATRIAL FIBRILLATION
     Route: 048
     Dates: start: 201111
  3. TIKOSYN [Suspect]
     Route: 048
     Dates: start: 201110
  4. BETA-BLOCKERS UNSPECIFIED [Suspect]
     Indication: ATRIAL FIBRILLATION
     Dates: start: 2003
  5. XARELTO [Suspect]
     Indication: ANTICOAGULANT THERAPY
     Dates: start: 201110
  6. PRADAXA [Suspect]
     Indication: ANTICOAGULANT THERAPY
     Dates: start: 201110, end: 201110
  7. LOVAZA [Suspect]
     Indication: SUPPLEMENTATION THERAPY
     Route: 048
  8. UNSPECIFIED STATINS [Suspect]
     Indication: BLOOD CHOLESTEROL ABNORMAL
  9. ASPIRIN [Suspect]
     Indication: OSTEOARTHRITIS
     Dates: start: 2005, end: 2011
  10. BISOPROLOL FUMARATE [Suspect]
     Indication: HEART RATE INCREASED
     Dates: start: 2012

REACTIONS (29)
  - Joint stiffness [Not Recovered/Not Resolved]
  - Arthritis [Not Recovered/Not Resolved]
  - Activities of daily living impaired [Not Recovered/Not Resolved]
  - Pain [Recovered/Resolved]
  - Laboratory test abnormal [Unknown]
  - Anxiety [Unknown]
  - Drug intolerance [Unknown]
  - Muscle disorder [Unknown]
  - Weight increased [Unknown]
  - Atrial fibrillation [Unknown]
  - Accident [Unknown]
  - Fall [Unknown]
  - Cardiomegaly [Not Recovered/Not Resolved]
  - Nausea [Unknown]
  - Adverse reaction [Unknown]
  - Asthenia [Unknown]
  - Sluggishness [Unknown]
  - Somnolence [Unknown]
  - Blood cholesterol increased [Unknown]
  - Blood glucose increased [Unknown]
  - Thyroid function test abnormal [Unknown]
  - Pain [Unknown]
  - Abasia [Unknown]
  - Mobility decreased [Unknown]
  - Muscle spasms [Unknown]
  - Asthma [Unknown]
  - Unevaluable event [Unknown]
  - Autoimmune disorder [Unknown]
  - Heart rate increased [Unknown]
